FAERS Safety Report 6460211-0 (Version None)
Quarter: 2009Q4

REPORT INFORMATION
  Report Type: 
  Country: None (occurrence: None)
  Receive Date: 20091130
  Receipt Date: 20091120
  Transmission Date: 20100525
  Serious: Yes (Hospitalization)
  Sender: FDA-Public Use
  Company Number: GB-RANBAXY-2009RR-25270

PATIENT
  Age: 63 Year
  Sex: Male

DRUGS (8)
  1. IBUPROFEN [Suspect]
     Indication: DRUG USE FOR UNKNOWN INDICATION
     Dosage: 400 MG, TID
     Route: 048
     Dates: start: 20090420, end: 20090602
  2. PREDNISOLONE [Suspect]
     Indication: DRUG USE FOR UNKNOWN INDICATION
  3. CP-751871 [Concomitant]
     Indication: PROSTATE CANCER METASTATIC
  4. CYCLIZINE [Concomitant]
     Dosage: 50 MG, TID
     Route: 048
  5. DIAZEPAM [Concomitant]
     Dosage: 2 MG, TID
     Route: 048
  6. OMEPRAZOLE [Concomitant]
     Dosage: 20 MG, QD
     Route: 048
  7. OXYCODONE HCL [Concomitant]
     Dosage: 10 MG, UNK
     Route: 048
  8. OXYCONTIN [Concomitant]
     Dosage: 10 MG, BID
     Route: 048

REACTIONS (1)
  - RENAL IMPAIRMENT [None]
